FAERS Safety Report 14670007 (Version 1)
Quarter: 2018Q1

REPORT INFORMATION
  Report Type: Spontaneous
  Country: US (occurrence: US)
  Receive Date: 20180322
  Receipt Date: 20180322
  Transmission Date: 20180509
  Serious: No
  Sender: FDA-Public Use
  Company Number: US-PFIZER INC-2018092689

PATIENT
  Age: 62 Year
  Sex: Female
  Weight: 73 kg

DRUGS (10)
  1. PERJETA [Concomitant]
     Active Substance: PERTUZUMAB
     Indication: CHEMOTHERAPY
     Dosage: UNK
  2. DOCETAXEL. [Suspect]
     Active Substance: DOCETAXEL
     Indication: CHEMOTHERAPY
     Dosage: UNK, EVERY 3 WEEKS (24 CYCLES)
     Dates: start: 201401, end: 201406
  3. DOCETAXEL. [Suspect]
     Active Substance: DOCETAXEL
     Dosage: UNK
     Dates: start: 201401, end: 201406
  4. TAXOTERE [Suspect]
     Active Substance: DOCETAXEL
     Indication: CHEMOTHERAPY
     Dosage: UNK
     Dates: start: 201401, end: 201406
  5. DOCEFREZ [Suspect]
     Active Substance: DOCETAXEL ANHYDROUS
     Dosage: UNK
     Dates: start: 201401, end: 201406
  6. DOCETAXEL. [Suspect]
     Active Substance: DOCETAXEL
     Indication: METASTASES TO LIVER
  7. DOCETAXEL. [Suspect]
     Active Substance: DOCETAXEL
     Indication: BREAST CANCER FEMALE
  8. HERCEPTIN [Concomitant]
     Active Substance: TRASTUZUMAB
     Indication: CHEMOTHERAPY
     Dosage: UNK
  9. DOCETAXEL. [Suspect]
     Active Substance: DOCETAXEL
     Dosage: UNK
     Dates: start: 201401, end: 201406
  10. LEVOTHYROXINE. [Concomitant]
     Active Substance: LEVOTHYROXINE
     Dosage: UNK
     Dates: start: 1976

REACTIONS (5)
  - Hair colour changes [Not Recovered/Not Resolved]
  - Alopecia [Not Recovered/Not Resolved]
  - Hair disorder [Not Recovered/Not Resolved]
  - Madarosis [Not Recovered/Not Resolved]
  - Hair texture abnormal [Not Recovered/Not Resolved]

NARRATIVE: CASE EVENT DATE: 201406
